APPROVED DRUG PRODUCT: DEXTROSE 2.5% AND SODIUM CHLORIDE 0.45% IN PLASTIC CONTAINER
Active Ingredient: DEXTROSE; SODIUM CHLORIDE
Strength: 2.5GM/100ML;450MG/100ML
Dosage Form/Route: INJECTABLE;INJECTION
Application: A211190 | Product #001 | TE Code: AP
Applicant: FRESENIUS KABI USA LLC
Approved: Dec 20, 2019 | RLD: No | RS: No | Type: RX